FAERS Safety Report 6433702-6 (Version None)
Quarter: 2009Q4

REPORT INFORMATION
  Report Type: 
  Country: None (occurrence: None)
  Receive Date: 20091110
  Receipt Date: 20091103
  Transmission Date: 20100525
  Serious: Yes (Hospitalization)
  Sender: FDA-Public Use
  Company Number: US-ROCHE-663140

PATIENT
  Age: 86 Year
  Sex: Female
  Weight: 67.3 kg

DRUGS (1)
  1. BONIVA [Suspect]
     Indication: OSTEOPOROSIS
     Dosage: THERAPY DURATION: 3-5 YEARS
     Route: 048

REACTIONS (6)
  - FALL [None]
  - FEMUR FRACTURE [None]
  - IMPAIRED HEALING [None]
  - PROCEDURAL PAIN [None]
  - TOOTH EXTRACTION [None]
  - WEIGHT DECREASED [None]
